FAERS Safety Report 20594173 (Version 1)
Quarter: 2022Q1

REPORT INFORMATION
  Report Type: Spontaneous
  Country: IL (occurrence: IL)
  Receive Date: 20220315
  Receipt Date: 20220315
  Transmission Date: 20220423
  Serious: Yes (Hospitalization)
  Sender: FDA-Public Use
  Company Number: IL-LUPIN PHARMACEUTICALS INC.-2022-03487

PATIENT
  Age: 45 Year
  Sex: Female

DRUGS (14)
  1. CALCIUM [Suspect]
     Active Substance: CALCIUM
     Indication: Hypocalcaemia
     Dosage: 0.6 GRAM, TID (CALCIUM CARBONATE) (ON DAY 1 OF HOSPITALISATION)
     Route: 048
  2. CALCIUM [Suspect]
     Active Substance: CALCIUM
     Dosage: 1.2 GRAM, TID (CALCIUM CARBONATE) (ON DAY 2, 3 AND 5 OF HOSPITALISATION)
     Route: 048
  3. CALCIUM [Suspect]
     Active Substance: CALCIUM
     Dosage: 1.8 GRAM, TID (CALCIUM CARBONATE) (FROM DAY 7 TO DAY 12 OF HOSPITALISATION)
     Route: 048
  4. CALCIUM [Suspect]
     Active Substance: CALCIUM
     Dosage: 1.8 GRAM, QID (CALCIUM CARBONATE) (ON DAY 13 AND 15 OF HOSPITALISATION)
     Route: 048
  5. CALCIUM [Suspect]
     Active Substance: CALCIUM
     Dosage: 1000 MILLIGRAM (CALCIUM GLUCONATE) (ON DAY 1 AND 2 OF HOSPITALISATION) (STRENGTH: 10 PERCENT)
     Route: 042
  6. CALCIUM [Suspect]
     Active Substance: CALCIUM
     Dosage: 2000 MILLIGRAM (CALCIUM GLUCONATE) (ON DAY 1 AND 2 OF HOSPITALISATION (ON DAY 3 OF HOSPITALISATION)
     Route: 042
  7. CALCIUM [Suspect]
     Active Substance: CALCIUM
     Dosage: 10000 MILLIGRAM(CALCIUM GLUCONATE) DAY 5,7,8 AND 9 OF HOSPITALISATION)
     Route: 042
  8. CALCIUM [Suspect]
     Active Substance: CALCIUM
     Dosage: 5000 MILLIGRAM (CALCIUM GLUCONATE) AY 10 OF HOSPITALISATION)
     Route: 042
  9. CALCITRIOL [Suspect]
     Active Substance: CALCITRIOL
     Indication: Hypocalcaemia
     Dosage: UNK
     Route: 065
  10. CALCITRIOL [Suspect]
     Active Substance: CALCITRIOL
     Dosage: UNK (1 + 1 UG ON DAYS 1,2,3,5,7,8,9,10,11,12 AND 13 OF HOSPITALISATION)
     Route: 048
  11. CALCITRIOL [Suspect]
     Active Substance: CALCITRIOL
     Dosage: UNK (1 + 0.5 UG ON DAY 15 OF HOSPITALISATION)
     Route: 048
  12. IRON [Concomitant]
     Active Substance: IRON
     Indication: Normocytic anaemia
     Dosage: UNK
     Route: 065
  13. LEUPROLIDE [Concomitant]
     Active Substance: LEUPROLIDE
     Indication: Metastases to bone
     Dosage: 3.75 MG (SINGLE DOSE)
     Route: 058
  14. CHLORAMBUCIL [Concomitant]
     Active Substance: CHLORAMBUCIL
     Indication: Metastases to bone
     Dosage: 3.5 MG (SINGLE DOSE)
     Route: 042

REACTIONS (1)
  - Drug resistance [Unknown]
